FAERS Safety Report 10660816 (Version 1)
Quarter: 2014Q4

REPORT INFORMATION
  Report Type: Other
  Country: IT (occurrence: IT)
  Receive Date: 20141217
  Receipt Date: 20141217
  Transmission Date: 20150529
  Serious: Yes (Hospitalization)
  Sender: FDA-Public Use
  Company Number: IT-MYLANLABS-2014M1013736

PATIENT

DRUGS (2)
  1. ACICLOVIR [Suspect]
     Active Substance: ACYCLOVIR
     Indication: ORAL HERPES
     Dosage: 30 ML DAILY
     Route: 048
     Dates: start: 20141108, end: 20141115
  2. NUROFEN [Suspect]
     Active Substance: IBUPROFEN
     Indication: PYREXIA
     Dosage: 30 ML DAILY
     Dates: start: 20141108, end: 20141113

REACTIONS (4)
  - Rash maculo-papular [Recovered/Resolved]
  - Erythema multiforme [Recovered/Resolved]
  - Tongue coated [Recovered/Resolved]
  - Stomatitis [Recovered/Resolved]

NARRATIVE: CASE EVENT DATE: 20141116
